FAERS Safety Report 4399339-8 (Version None)
Quarter: 2004Q3

REPORT INFORMATION
  Report Type: 
  Country: None (occurrence: None)
  Receive Date: 20040712
  Receipt Date: 20040702
  Transmission Date: 20050211
  Serious: Yes (Hospitalization)
  Sender: FDA-Public Use
  Company Number: GBWYE862029JUN04

PATIENT
  Age: 56 Year
  Sex: Female

DRUGS (17)
  1. TACROLIMUS, CONTROL FOR SIROLIMUS (TACROLIMUS, CONTROL FOR SIROLIMUS,) [Suspect]
     Indication: IMMUNOSUPPRESSANT DRUG THERAPY
     Dates: end: 20040618
  2. MYCOPHENOLATE MOFETIL (MYCOPHENOLATE MOFETIL) [Concomitant]
  3. MYCOPHENOLATE MOFETIL (MYCOPHENOLATE MOFETIL) [Concomitant]
  4. PREDNISOLONE [Concomitant]
  5. VERAPAMIL [Concomitant]
  6. CALCITRIOL [Concomitant]
  7. OMEPRAZOLE [Concomitant]
  8. CERIVASTATIN (CERIVASTATIN) [Concomitant]
  9. AMITRIPTYLINE HCL [Concomitant]
  10. DIAZEPAM [Concomitant]
  11. CIPROFLOXACIN [Concomitant]
  12. CARDURA [Concomitant]
  13. CYCLIZINE (CYCLIZINE) [Concomitant]
  14. IMODIUM [Concomitant]
  15. SPASMONAL (ALVERINE CITRATE) [Concomitant]
  16. PARACETAMOL (PARACETAMOL) [Concomitant]
  17. GALFER (FERROUS FUMARATE) [Concomitant]

REACTIONS (5)
  - ABDOMINAL PAIN [None]
  - CHILLS [None]
  - MALAISE [None]
  - TRANSPLANT REJECTION [None]
  - VIRAL INFECTION [None]
